FAERS Safety Report 6519023-1 (Version None)
Quarter: 2009Q4

REPORT INFORMATION
  Report Type: 
  Country: None (occurrence: None)
  Receive Date: 20091228
  Receipt Date: 20091217
  Transmission Date: 20100525
  Serious: Yes (Hospitalization)
  Sender: FDA-Public Use
  Company Number: IT-BAYER-200943272GPV

PATIENT
  Age: 90 Year
  Sex: Female

DRUGS (3)
  1. ASPIRIN [Suspect]
     Indication: PERIPHERAL ISCHAEMIA
     Dosage: TOTAL DAILY DOSE: 100 MG
     Route: 048
     Dates: start: 20091116, end: 20091210
  2. PLAVIX [Suspect]
     Indication: ACUTE CORONARY SYNDROME
     Dosage: TOTAL DAILY DOSE: 75 MG
     Route: 048
     Dates: start: 20091116, end: 20091210
  3. CLEXANE [Suspect]
     Indication: VASCULAR PSEUDOANEURYSM
     Dosage: TOTAL DAILY DOSE: 4000 IU
     Route: 058
     Dates: start: 20091116, end: 20091210

REACTIONS (2)
  - EPISTAXIS [None]
  - THROMBOCYTOPENIA [None]
